FAERS Safety Report 23991274 (Version 1)
Quarter: 2024Q2

REPORT INFORMATION
  Report Type: Spontaneous
  Country: BR (occurrence: BR)
  Receive Date: 20240619
  Receipt Date: 20240619
  Transmission Date: 20240716
  Serious: Yes (Other)
  Sender: FDA-Public Use
  Company Number: BR-SA-SAC20231115001409

PATIENT

DRUGS (4)
  1. SABRIL [Suspect]
     Active Substance: VIGABATRIN
     Indication: Infantile spasms
     Dosage: 4 DF, QD
  2. SABRIL [Suspect]
     Active Substance: VIGABATRIN
     Indication: Aicardi^s syndrome
  3. LEVETIRACETAM [Concomitant]
     Active Substance: LEVETIRACETAM
     Indication: Product used for unknown indication
     Dosage: UNK
  4. CLONAZEPAM [Concomitant]
     Active Substance: CLONAZEPAM
     Indication: Product used for unknown indication
     Dosage: UNK

REACTIONS (9)
  - Quadriparesis [Unknown]
  - Drug dependence [Unknown]
  - Seizure [Unknown]
  - Hypoacusis [Unknown]
  - Communication disorder [Unknown]
  - Movement disorder [Unknown]
  - Visual impairment [Unknown]
  - Product use in unapproved indication [Unknown]
  - Poor quality product administered [Unknown]
